FAERS Safety Report 8001008-X (Version None)
Quarter: 2011Q4

REPORT INFORMATION
  Report Type: 
  Country: None (occurrence: None)
  Receive Date: 20111222
  Receipt Date: 20110411
  Transmission Date: 20120403
  Serious: No
  Sender: FDA-Public Use
  Company Number: US-GLAXOSMITHKLINE-A0922459A

PATIENT
  Age: 46 Year
  Sex: Female

DRUGS (3)
  1. CLONAZEPAM [Concomitant]
  2. AMOXICILLIN [Concomitant]
  3. FLONASE [Suspect]
     Indication: SINUSITIS
     Dosage: 2SPR PER DAY
     Route: 045
     Dates: start: 20110411

REACTIONS (1)
  - VISION BLURRED [None]
